FAERS Safety Report 7774546-2 (Version None)
Quarter: 2011Q3

REPORT INFORMATION
  Report Type: 
  Country: None (occurrence: None)
  Receive Date: 20110923
  Receipt Date: 20110923
  Transmission Date: 20111222
  Serious: Yes (Other)
  Sender: FDA-Public Use
  Company Number: None

PATIENT
  Age: 43 Year
  Sex: Male
  Weight: 90.718 kg

DRUGS (2)
  1. CHANTIX [Concomitant]
     Indication: EX-TOBACCO USER
     Dosage: 2 TABLETS
     Route: 048
     Dates: start: 20110824, end: 20110916
  2. CHANTIX [Suspect]
     Indication: EX-TOBACCO USER
     Dosage: 1 TABLET
     Route: 048
     Dates: start: 20110817, end: 20110823

REACTIONS (4)
  - TREMOR [None]
  - DYSPNOEA [None]
  - DISORIENTATION [None]
  - ASTHENIA [None]
